FAERS Safety Report 8361886-1 (Version None)
Quarter: 2012Q2

REPORT INFORMATION
  Report Type: 
  Country: None (occurrence: None)
  Receive Date: 20120515
  Receipt Date: 20120504
  Transmission Date: 20120825
  Serious: Yes (Congenital Anomaly)
  Sender: FDA-Public Use
  Company Number: DE-JNJFOC-20120507512

PATIENT

DRUGS (4)
  1. FOLSAURE [Concomitant]
     Indication: FOETAL EXPOSURE DURING PREGNANCY
     Route: 064
  2. REMICADE [Suspect]
     Indication: FOETAL EXPOSURE DURING PREGNANCY
     Route: 064
     Dates: start: 20100324, end: 20100531
  3. CLOTRIMAZOLE [Concomitant]
     Indication: FOETAL EXPOSURE DURING PREGNANCY
     Route: 064
     Dates: start: 20100527
  4. DIPYRONE TAB [Concomitant]
     Indication: FOETAL EXPOSURE DURING PREGNANCY
     Route: 064
     Dates: start: 20100315, end: 20100621

REACTIONS (2)
  - LIMB REDUCTION DEFECT [None]
  - EXOMPHALOS [None]
